FAERS Safety Report 8315486 (Version 3)
Quarter: 2014Q1

REPORT INFORMATION
  Report Type: Report from Study
  Country: US (occurrence: US)
  Receive Date: 20111229
  Receipt Date: 20140207
  Transmission Date: 20141002
  Serious: Yes (Hospitalization)
  Sender: FDA-Public Use
  Company Number: US-PFIZER INC-2011310659

PATIENT
  Age: 59 Year
  Sex: Male
  Weight: 79 kg

DRUGS (21)
  1. BLINDED CELECOXIB [Suspect]
     Indication: NON-SMALL CELL LUNG CANCER
     Dosage: 2X/DAY
     Route: 048
     Dates: start: 20111109, end: 20111116
  2. BLINDED PLACEBO [Suspect]
     Indication: NON-SMALL CELL LUNG CANCER
     Dosage: 2X/DAY
     Route: 048
     Dates: start: 20111109, end: 20111116
  3. BLINDED CELECOXIB [Suspect]
     Dosage: UNK, 2X/DAY
     Dates: start: 20111204, end: 20111204
  4. BLINDED PLACEBO [Suspect]
     Dosage: UNK, 2X/DAY
     Dates: start: 20111204, end: 20111204
  5. CARBOPLATIN [Suspect]
     Indication: NON-SMALL CELL LUNG CANCER
     Dosage: AUC=5.5, CYCLIC
     Route: 042
     Dates: start: 20111101, end: 20111125
  6. GEMCITABINE HYDROCHLORIDE [Suspect]
     Indication: NON-SMALL CELL LUNG CANCER
     Dosage: 1000 MG/M2, CYCLIC ON DAYS 1 AND 8
     Route: 042
     Dates: start: 20111101, end: 20111202
  7. ACETYLSALICYLIC ACID [Concomitant]
     Dosage: 81 MG, DAILY
     Route: 048
  8. ATENOLOL [Concomitant]
     Dosage: 12.5 MG, DAILY
     Route: 048
  9. CALCIUM WITH VITAMIN D [Concomitant]
     Dosage: 1 TABLET (500MG/200UNITS), DAILY
     Route: 048
  10. DIPHENHYDRAMINE [Concomitant]
     Dosage: 50 MG, Q6H PRN
     Route: 048
  11. DOCUSATE SODIUM [Concomitant]
     Dosage: 100 MG, 2X/DAY
     Route: 048
  12. FLUNISOLIDE [Concomitant]
     Dosage: 2 SPRAYS, EN BID
     Route: 045
  13. LOSARTAN [Concomitant]
     Dosage: 50 MG, ID
     Route: 048
  14. MORPHINE [Concomitant]
     Dosage: 15 MG, 2X/DAY
     Route: 048
  15. OMEPRAZOLE [Concomitant]
     Dosage: 40 MG, BID AC
     Route: 048
  16. OXYCODONE HYDROCHLORIDE W/PARACETAMOL [Concomitant]
     Dosage: 10/650MG TAB 2 TABLETS, Q4H PRN
     Route: 048
  17. OXYCODONE HYDROCHLORIDE W/PARACETAMOL [Concomitant]
     Dosage: 5/325MG TAB 1 TABLET, Q4H PRN
     Route: 048
  18. PROCHLORPERAZINE [Concomitant]
     Dosage: 10 MG, Q4HR PRN
     Route: 048
  19. SERTRALINE [Concomitant]
     Dosage: 25 MG, DAILY
     Route: 048
  20. SIMVASTATIN [Concomitant]
     Dosage: 40 MG, QHS
     Route: 048
  21. SODIUM CHLORIDE [Concomitant]
     Dosage: SODIUM CHLORIDE 0.9% INJ IN SODIUM CHLORIDE 0.9% 1000 ML 100 ML/HR
     Route: 042

REACTIONS (2)
  - Rash maculo-papular [Recovered/Resolved]
  - Pyrexia [Recovered/Resolved]
